FAERS Safety Report 22394672 (Version 1)
Quarter: 2023Q2

REPORT INFORMATION
  Report Type: Spontaneous
  Country: US (occurrence: US)
  Receive Date: 20230601
  Receipt Date: 20230601
  Transmission Date: 20230722
  Serious: No
  Sender: FDA-Public Use
  Company Number: US-APIL-2312873US

PATIENT
  Sex: Female

DRUGS (2)
  1. LASTACAFT [Suspect]
     Active Substance: ALCAFTADINE
     Indication: Conjunctivitis allergic
     Dosage: 1 DF, QD
     Route: 047
     Dates: start: 20230423, end: 20230427
  2. LASTACAFT [Suspect]
     Active Substance: ALCAFTADINE
     Indication: Eye pruritus

REACTIONS (1)
  - Drug ineffective [Unknown]
